FAERS Safety Report 12062552 (Version 1)
Quarter: 2016Q1

REPORT INFORMATION
  Report Type: Report from Study
  Country: US (occurrence: US)
  Receive Date: 20160210
  Receipt Date: 20160210
  Transmission Date: 20160526
  Serious: Yes (Other)
  Sender: FDA-Public Use
  Company Number: US-MYLANLABS-2016M1004728

PATIENT

DRUGS (2)
  1. IRINOTECAN [Interacting]
     Active Substance: IRINOTECAN
     Indication: NEOPLASM
     Dosage: 18 MG/M2 ADMINISTERED OVER 60 MINUTES
     Route: 042
  2. CARBOPLATIN. [Suspect]
     Active Substance: CARBOPLATIN
     Indication: NEOPLASM
     Dosage: 4.0 MG/ML/MIN ADMINISTERED OVER 50 MINUTES
     Route: 042

REACTIONS (3)
  - Device related infection [Unknown]
  - Drug interaction [Unknown]
  - Abdominal pain [Unknown]
